FAERS Safety Report 9173867 (Version 1)
Quarter: 2013Q1

REPORT INFORMATION
  Report Type: Spontaneous
  Country: CA (occurrence: CA)
  Receive Date: 20130320
  Receipt Date: 20130320
  Transmission Date: 20140127
  Serious: Yes (Death, Disabling)
  Sender: FDA-Public Use
  Company Number: CA-BRISTOL-MYERS SQUIBB COMPANY-17153172

PATIENT
  Age: 51 Year
  Sex: Male

DRUGS (6)
  1. YERVOY [Suspect]
     Indication: MALIGNANT MELANOMA
     Route: 042
     Dates: start: 20121105
  2. HYDROMORPHONE HCL [Suspect]
     Indication: CANCER PAIN
     Route: 048
  3. HALOPERIDOL [Concomitant]
  4. LEVETIRACETAM [Concomitant]
  5. TYLENOL #3 [Concomitant]
  6. DEXAMETHASONE [Concomitant]
     Dosage: 2-4MG

REACTIONS (3)
  - Malignant neoplasm progression [Fatal]
  - Constipation [Unknown]
  - Malignant melanoma [None]
